FAERS Safety Report 9600651 (Version 1)
Quarter: 2013Q4

REPORT INFORMATION
  Report Type: Spontaneous
  Country: US (occurrence: US)
  Receive Date: 20131004
  Receipt Date: 20131004
  Transmission Date: 20140711
  Serious: No
  Sender: FDA-Public Use
  Company Number: US-AMGEN-USASP2013035858

PATIENT
  Age: 65 Year
  Sex: Male
  Weight: 84.35 kg

DRUGS (14)
  1. ENBREL [Suspect]
     Indication: PRODUCT USED FOR UNKNOWN INDICATION
     Dosage: 50 MG, QWK
     Route: 058
  2. SINGULAIR [Concomitant]
     Dosage: 4 MG, UNK
  3. ATIVAN [Concomitant]
     Dosage: 0.5 MG, UNK
  4. LIPITOR [Concomitant]
     Dosage: 10 MG, UNK
  5. LOPID [Concomitant]
     Dosage: 600 MG, UNK
  6. METHOTREXATE [Concomitant]
     Dosage: 20 MG, UNK
  7. VENLAFAXINE [Concomitant]
     Dosage: 150 MG ER, UNK
  8. VENTOLIN HFA [Concomitant]
     Dosage: UNK
  9. SYMBICORT [Concomitant]
     Dosage: 80-4.5 AER
  10. NEXIUM                             /01479302/ [Concomitant]
     Dosage: 40 MG, UNK
  11. VITAMIN D                          /00107901/ [Concomitant]
     Dosage: 50000 UNIT, UNK
  12. CETIRIZINE [Concomitant]
     Dosage: 10 MG, UNK
  13. LINZESS [Concomitant]
     Dosage: 290 MUG, UNK
  14. CALCIUM [Concomitant]
     Dosage: 500 UNK, UNK

REACTIONS (1)
  - Drug ineffective [Unknown]
